FAERS Safety Report 10022503 (Version 3)
Quarter: 2014Q2

REPORT INFORMATION
  Report Type: Spontaneous
  Country: NZ (occurrence: NZ)
  Receive Date: 20140319
  Receipt Date: 20140416
  Transmission Date: 20141212
  Serious: Yes (Hospitalization, Other)
  Sender: FDA-Public Use
  Company Number: NZ-CELGENEUS-118-21880-13121917

PATIENT
  Age: 77 Year
  Sex: Male
  Weight: 63.9 kg

DRUGS (25)
  1. REVLIMID [Suspect]
     Indication: PLASMA CELL MYELOMA
     Dosage: 25 MILLIGRAM
     Route: 048
     Dates: start: 20131121, end: 20140325
  2. MLN9708 [Suspect]
     Indication: PLASMA CELL MYELOMA
     Dosage: 4 MILLIGRAM
     Route: 048
     Dates: start: 20131121
  3. DEXAMETHASONE [Suspect]
     Indication: PLASMA CELL MYELOMA
     Dosage: 40 MILLIGRAM
     Route: 048
     Dates: start: 20131121, end: 20140319
  4. PARACETAMOL [Concomitant]
     Indication: BACK PAIN
     Dosage: 3 GRAM
     Route: 048
     Dates: start: 20130704
  5. DOXAZOSIN [Concomitant]
     Indication: HYPERTENSION
     Dosage: 4 MILLIGRAM
     Route: 048
     Dates: start: 20080722
  6. SERETID [Concomitant]
     Indication: HYPERTENSION
     Dosage: 125/25
     Route: 065
     Dates: start: 20061116
  7. SPIRIVA [Concomitant]
     Indication: CHRONIC OBSTRUCTIVE PULMONARY DISEASE
     Route: 065
     Dates: start: 200707
  8. DUOLIN RESPULE [Concomitant]
     Indication: CHRONIC OBSTRUCTIVE PULMONARY DISEASE
     Route: 065
     Dates: start: 201111
  9. OMEPRAZOLE [Concomitant]
     Indication: GASTROOESOPHAGEAL REFLUX DISEASE
     Route: 048
     Dates: start: 200907
  10. OMEPRAZOLE [Concomitant]
     Indication: DYSPEPSIA
     Route: 065
  11. FLIXONASE [Concomitant]
     Indication: PYREXIA
     Dosage: 50 MICROGRAM
     Route: 048
     Dates: start: 20120410
  12. FLIXONASE [Concomitant]
     Indication: HYPERSENSITIVITY
     Route: 065
     Dates: start: 20121004
  13. PAMIDRONATE [Concomitant]
     Indication: OSTEOPOROSIS
     Route: 041
     Dates: start: 20130404
  14. ASPIRINE [Concomitant]
     Indication: THROMBOSIS PROPHYLAXIS
     Dosage: 100 MILLIGRAM
     Route: 048
     Dates: start: 20131121
  15. LAXSOL [Concomitant]
     Indication: PRODUCT USED FOR UNKNOWN INDICATION
     Route: 065
  16. CETIRIZINE HYDROCHLORIDE [Concomitant]
     Indication: PRODUCT USED FOR UNKNOWN INDICATION
     Route: 065
     Dates: start: 200907
  17. FLUTICASONE [Concomitant]
     Indication: PRODUCT USED FOR UNKNOWN INDICATION
     Route: 065
     Dates: start: 20121004
  18. ZOPICLONE [Concomitant]
     Indication: PRODUCT USED FOR UNKNOWN INDICATION
     Route: 065
     Dates: start: 200807
  19. ZOPICLONE [Concomitant]
     Indication: HYPERSENSITIVITY
  20. CHOLECALCIFEROL [Concomitant]
     Indication: PRODUCT USED FOR UNKNOWN INDICATION
     Route: 065
  21. CHOLECALCIFEROL [Concomitant]
     Indication: HYPERSENSITIVITY
  22. CALCITAB [Concomitant]
     Indication: PRODUCT USED FOR UNKNOWN INDICATION
     Route: 065
  23. CALCITAB [Concomitant]
     Indication: HYPERSENSITIVITY
  24. ACICLOVIR [Concomitant]
     Indication: PRODUCT USED FOR UNKNOWN INDICATION
     Route: 065
  25. ACICLOVIR [Concomitant]
     Indication: HYPERSENSITIVITY

REACTIONS (3)
  - Gastrointestinal haemorrhage [Recovered/Resolved]
  - Hypovolaemia [Recovered/Resolved]
  - Intestinal obstruction [Recovered/Resolved]
